FAERS Safety Report 5505404-1 (Version None)
Quarter: 2007Q4

REPORT INFORMATION
  Report Type: 
  Country: None (occurrence: None)
  Receive Date: 20071102
  Receipt Date: 20071026
  Transmission Date: 20080405
  Serious: Yes (Hospitalization)
  Sender: FDA-Public Use
  Company Number: JP-MERCK-0709USA02153

PATIENT
  Age: 78 Year
  Sex: Female
  Weight: 39 kg

DRUGS (1)
  1. FOSAMAX [Suspect]
     Indication: OSTEOPOROSIS
     Route: 048

REACTIONS (2)
  - LOW TURNOVER OSTEOPATHY [None]
  - PATHOLOGICAL FRACTURE [None]
